FAERS Safety Report 5448581-3 (Version None)
Quarter: 2007Q3

REPORT INFORMATION
  Report Type: 
  Country: None (occurrence: None)
  Receive Date: 20070911
  Receipt Date: 20070906
  Transmission Date: 20080115
  Serious: Yes (Congenital Anomaly, Other)
  Sender: FDA-Public Use
  Company Number: DE-BRISTOL-MYERS SQUIBB COMPANY-13900840

PATIENT
  Sex: Female

DRUGS (1)
  1. ABILIFY [Suspect]
     Route: 064

REACTIONS (5)
  - DYSMORPHISM [None]
  - MENINGOMYELOCELE [None]
  - PREMATURE BABY [None]
  - TETHERED CORD SYNDROME [None]
  - VESICOURETERIC REFLUX [None]
